FAERS Safety Report 9892516 (Version 4)
Quarter: 2014Q1

REPORT INFORMATION
  Report Type: Report from Study
  Country: US (occurrence: US)
  Receive Date: 20140212
  Receipt Date: 20140303
  Transmission Date: 20141002
  Serious: Yes (Hospitalization)
  Sender: FDA-Public Use
  Company Number: US-TEVA-459953USA

PATIENT
  Sex: Male

DRUGS (6)
  1. CLOZAPINE [Suspect]
     Indication: MAJOR DEPRESSION
     Route: 048
     Dates: end: 20140207
  2. CLOZAPINE [Suspect]
     Indication: PSYCHOTIC DISORDER
  3. HALOPERIDOL [Concomitant]
     Dosage: PRN
  4. HYDROXYZINE [Concomitant]
     Dosage: PRN
  5. LORAZEPAM [Concomitant]
     Dosage: PRN
  6. SERTRALINE [Concomitant]

REACTIONS (3)
  - Adverse event [Recovered/Resolved]
  - Confusional state [Recovered/Resolved]
  - Disturbance in attention [Recovered/Resolved]
